FAERS Safety Report 12402471 (Version 2)
Quarter: 2016Q2

REPORT INFORMATION
  Report Type: Spontaneous
  Country: US (occurrence: US)
  Receive Date: 20160525
  Receipt Date: 20160527
  Transmission Date: 20160815
  Serious: No
  Sender: FDA-Public Use
  Company Number: US-SA-2016SA044318

PATIENT
  Age: 67 Year
  Sex: Male

DRUGS (5)
  1. LANTUS SOLOSTAR [Suspect]
     Active Substance: INSULIN GLARGINE
     Indication: TYPE 2 DIABETES MELLITUS
     Dosage: DOSE:20 UNIT(S)
     Route: 065
     Dates: start: 201602
  2. LANTUS SOLOSTAR [Suspect]
     Active Substance: INSULIN GLARGINE
     Indication: TYPE 2 DIABETES MELLITUS
     Dosage: 3 UNITS A NIGHT, INCREASE HIS DOSE BY 3 UNITS EVERY NIGHT
     Route: 065
     Dates: start: 2012, end: 2012
  3. METFORMIN [Concomitant]
     Active Substance: METFORMIN HYDROCHLORIDE
  4. SOLOSTAR [Concomitant]
     Active Substance: DEVICE
     Indication: TYPE 2 DIABETES MELLITUS
     Dates: start: 2012, end: 2012
  5. SOLOSTAR [Concomitant]
     Active Substance: DEVICE
     Indication: TYPE 2 DIABETES MELLITUS
     Dates: start: 201602

REACTIONS (8)
  - Drug ineffective [Unknown]
  - Tremor [Unknown]
  - Injection site pain [Unknown]
  - Inappropriate schedule of drug administration [Unknown]
  - Hypoglycaemia [Unknown]
  - Visual impairment [Unknown]
  - Blood glucose increased [Unknown]
  - Injection site bruising [Unknown]
